FAERS Safety Report 5649932-7 (Version None)
Quarter: 2008Q1

REPORT INFORMATION
  Report Type: 
  Country: None (occurrence: None)
  Receive Date: 20080131
  Receipt Date: 20071126
  Transmission Date: 20080703
  Serious: No
  Sender: FDA-Public Use
  Company Number: US200704006483

PATIENT
  Age: 73 Year
  Sex: Male
  Weight: 95.2 kg

DRUGS (7)
  1. BYETTA [Suspect]
     Indication: TYPE 2 DIABETES MELLITUS
     Dosage: 5 UG, 2/D, SUBCUTANEOUS
     Route: 058
     Dates: start: 20070319
  2. COUMADIN [Concomitant]
  3. AVODART [Concomitant]
  4. AVANDIA [Concomitant]
  5. GLIMEPIRIDE [Concomitant]
  6. AMIODARONE HCL [Concomitant]
  7. FUROSEMIDE [Concomitant]

REACTIONS (10)
  - CHEST DISCOMFORT [None]
  - DECREASED APPETITE [None]
  - DIARRHOEA [None]
  - INJECTION SITE BRUISING [None]
  - INJECTION SITE DISCOMFORT [None]
  - INTERNATIONAL NORMALISED RATIO INCREASED [None]
  - MUSCLE STRAIN [None]
  - MUSCULOSKELETAL DISCOMFORT [None]
  - NAUSEA [None]
  - WEIGHT DECREASED [None]
